FAERS Safety Report 13503672 (Version 1)
Quarter: 2017Q2

REPORT INFORMATION
  Report Type: Spontaneous
  Country: FR (occurrence: FR)
  Receive Date: 20170502
  Receipt Date: 20170502
  Transmission Date: 20170830
  Serious: Yes (Hospitalization, Other)
  Sender: FDA-Public Use
  Company Number: FR-PFIZER INC-2017182281

PATIENT
  Age: 61 Year
  Sex: Male
  Weight: 125 kg

DRUGS (9)
  1. MEROPENEM KABI [Suspect]
     Active Substance: MEROPENEM
     Dosage: 2 G, 2X/DAY
     Route: 042
     Dates: start: 20170306, end: 20170321
  2. FOSFOCINE [Suspect]
     Active Substance: FOSFOMYCIN
     Dosage: 4 G, 4X/DAY
     Route: 042
     Dates: start: 20170306, end: 20170311
  3. FOSFOCINE [Suspect]
     Active Substance: FOSFOMYCIN
     Dosage: 4 G, 3X/DAY
     Route: 042
     Dates: start: 20170311, end: 20170321
  4. TYGACIL [Suspect]
     Active Substance: TIGECYCLINE
     Indication: PNEUMONIA
     Dosage: 100 MG, 2X/DAY
     Route: 041
     Dates: start: 20170227, end: 20170321
  5. FOSFOCINE [Suspect]
     Active Substance: FOSFOMYCIN
     Indication: PNEUMONIA
     Dosage: 4 G, 3X/DAY
     Route: 042
     Dates: start: 20170305, end: 20170306
  6. CEFTAZIDIME. [Concomitant]
     Active Substance: CEFTAZIDIME
     Indication: PNEUMONIA
     Dosage: UNK
     Dates: start: 20170226
  7. MEROPENEM KABI [Suspect]
     Active Substance: MEROPENEM
     Indication: PNEUMONIA
     Dosage: 4 G, 2X/DAY
     Route: 042
     Dates: start: 20170227, end: 20170306
  8. COLIMYCINE /00013206/ [Concomitant]
     Indication: PNEUMONIA
     Dosage: UNK
     Dates: start: 20170225
  9. GENTAMICIN. [Concomitant]
     Active Substance: GENTAMICIN
     Indication: PNEUMONIA
     Dosage: UNK
     Dates: start: 20170225

REACTIONS (2)
  - Melaena [Recovered/Resolved]
  - Thrombocytopenia [Recovered/Resolved]

NARRATIVE: CASE EVENT DATE: 20170313
